FAERS Safety Report 13895426 (Version 1)
Quarter: 2017Q3

REPORT INFORMATION
  Report Type: Spontaneous
  Country: US (occurrence: US)
  Receive Date: 20170818
  Receipt Date: 20170818
  Transmission Date: 20171127
  Serious: No
  Sender: FDA-Public Use
  Company Number: None

PATIENT
  Age: 69 Year
  Sex: Female

DRUGS (1)
  1. OXALIPLATIN. [Suspect]
     Active Substance: OXALIPLATIN

REACTIONS (9)
  - Pruritus [None]
  - Restlessness [None]
  - Blood pressure increased [None]
  - Throat irritation [None]
  - Dysphagia [None]
  - Lip swelling [None]
  - Anxiety [None]
  - Urticaria [None]
  - Agitation [None]

NARRATIVE: CASE EVENT DATE: 20170815
